FAERS Safety Report 6268859-3 (Version None)
Quarter: 2009Q3

REPORT INFORMATION
  Report Type: 
  Country: None (occurrence: None)
  Receive Date: 20090709
  Receipt Date: 20090709
  Transmission Date: 20100115
  Serious: Yes (Other)
  Sender: FDA-Public Use
  Company Number: None

PATIENT
  Sex: Male
  Weight: 31.6 kg

DRUGS (4)
  1. TENEX [Suspect]
     Indication: ATTENTION DEFICIT/HYPERACTIVITY DISORDER
     Dosage: 1 MG IN AM PO
     Route: 048
     Dates: start: 20090327, end: 20090702
  2. METADATE CD [Suspect]
  3. PREVACID [Suspect]
  4. PERIACTIN [Suspect]

REACTIONS (5)
  - ANHEDONIA [None]
  - DEPRESSED MOOD [None]
  - FATIGUE [None]
  - SOMNOLENCE [None]
  - SUICIDAL IDEATION [None]
